FAERS Safety Report 25525490 (Version 1)
Quarter: 2025Q3

REPORT INFORMATION
  Report Type: Spontaneous
  Country: US (occurrence: US)
  Receive Date: 20250707
  Receipt Date: 20250707
  Transmission Date: 20251021
  Serious: Yes (Life-Threatening, Hospitalization)
  Sender: MYLAN
  Company Number: US-MYLANLABS-2025M1055320

PATIENT
  Age: 50 Year
  Sex: Female

DRUGS (9)
  1. CLOZAPINE [Interacting]
     Active Substance: CLOZAPINE
     Indication: Schizophrenia
  2. CLOZAPINE [Interacting]
     Active Substance: CLOZAPINE
     Dosage: 12.5 MILLIGRAM, QD
  3. CLOZAPINE [Interacting]
     Active Substance: CLOZAPINE
     Dosage: 75 MILLIGRAM, QD
  4. CLOZAPINE [Interacting]
     Active Substance: CLOZAPINE
  5. AMIODARONE [Interacting]
     Active Substance: AMIODARONE
     Indication: Atrial fibrillation
  6. LORAZEPAM [Concomitant]
     Active Substance: LORAZEPAM
     Indication: Withdrawal catatonia
     Dosage: 2 MILLIGRAM, Q6H
  7. LORAZEPAM [Concomitant]
     Active Substance: LORAZEPAM
     Indication: Drug withdrawal syndrome
  8. OLANZAPINE [Concomitant]
     Active Substance: OLANZAPINE
     Indication: Withdrawal catatonia
  9. OLANZAPINE [Concomitant]
     Active Substance: OLANZAPINE
     Indication: Drug withdrawal syndrome

REACTIONS (7)
  - Ileus [Unknown]
  - Withdrawal catatonia [Recovered/Resolved]
  - Drug withdrawal syndrome [Recovered/Resolved]
  - Intentional product misuse [Recovered/Resolved]
  - Treatment noncompliance [Recovered/Resolved]
  - Drug interaction [Unknown]
  - Electrocardiogram QT prolonged [Unknown]
